FAERS Safety Report 6385915-X (Version None)
Quarter: 2009Q4

REPORT INFORMATION
  Report Type: 
  Country: None (occurrence: None)
  Receive Date: 20091002
  Receipt Date: 20090122
  Transmission Date: 20100525
  Serious: No
  Sender: FDA-Public Use
  Company Number: US-ASTRAZENECA-2009UW02106

PATIENT
  Age: 55 Year
  Sex: Female
  Weight: 65.3 kg

DRUGS (3)
  1. ARIMIDEX [Suspect]
     Route: 048
     Dates: start: 20070101
  2. ZOLADEX [Suspect]
     Route: 058
  3. ZOMETA [Concomitant]

REACTIONS (2)
  - EYE HAEMORRHAGE [None]
  - VISUAL IMPAIRMENT [None]
